FAERS Safety Report 14207603 (Version 1)
Quarter: 2017Q4

REPORT INFORMATION
  Report Type: Spontaneous
  Country: US (occurrence: US)
  Receive Date: 20171121
  Receipt Date: 20171121
  Transmission Date: 20180321
  Serious: No
  Sender: FDA-Public Use
  Company Number: US-JNJFOC-20171026020

PATIENT
  Sex: Male

DRUGS (3)
  1. IMBRUVICA [Suspect]
     Active Substance: IBRUTINIB
     Indication: CHRONIC LYMPHOCYTIC LEUKAEMIA
     Route: 048
     Dates: start: 20170227
  2. ALEVE [Concomitant]
     Active Substance: NAPROXEN SODIUM
  3. FERROUS SULFATE. [Concomitant]
     Active Substance: FERROUS SULFATE

REACTIONS (1)
  - Fatigue [Unknown]
